FAERS Safety Report 8607627-1 (Version None)
Quarter: 2012Q3

REPORT INFORMATION
  Report Type: 
  Country: None (occurrence: None)
  Receive Date: 20120821
  Receipt Date: 20120815
  Transmission Date: 20120928
  Serious: Yes (Other)
  Sender: FDA-Public Use
  Company Number: US-BAYER-2011-099495

PATIENT
  Age: 33 Year
  Sex: Female
  Weight: 79.365 kg

DRUGS (6)
  1. CALCIUM W/IRON [Concomitant]
  2. MIRENA [Suspect]
     Indication: CONTRACEPTION
     Dosage: 20 MCG/24HR, CONT
     Route: 015
     Dates: start: 20101012, end: 20110908
  3. SYNTHROID [Concomitant]
  4. METFORMIN HCL [Concomitant]
  5. ZOLOFT [Concomitant]
  6. FESOTERODINE [Concomitant]

REACTIONS (2)
  - PREGNANCY WITH CONTRACEPTIVE DEVICE [None]
  - PLACENTA PRAEVIA HAEMORRHAGE [None]
